FAERS Safety Report 6716294-3 (Version None)
Quarter: 2010Q2

REPORT INFORMATION
  Report Type: 
  Country: None (occurrence: None)
  Receive Date: 20100506
  Receipt Date: 20100506
  Transmission Date: 20101027
  Serious: Yes (Death, Life-Threatening, Hospitalization, Disabling)
  Sender: FDA-Public Use
  Company Number: None

PATIENT
  Sex: Female
  Weight: 63.6 kg

DRUGS (2)
  1. PROCRIT [Suspect]
     Indication: ANAEMIA
     Dosage: 1ML (40,000 UNITS WEEKLY 023 - INJECTION
     Dates: start: 20081201, end: 20100101
  2. ARANESP [Suspect]
     Indication: ANAEMIA
     Dosage: UNKN MONTHLY AS NEEDED 023 - INJECTION
     Dates: start: 20070101, end: 20080101

REACTIONS (2)
  - CEREBROVASCULAR ACCIDENT [None]
  - RENAL FAILURE [None]
